FAERS Safety Report 12228334 (Version 1)
Quarter: 2016Q1

REPORT INFORMATION
  Report Type: Spontaneous
  Country: US (occurrence: None)
  Receive Date: 20160330
  Receipt Date: 20160330
  Transmission Date: 20160526
  Serious: Yes (Hospitalization)
  Sender: FDA-Public Use
  Company Number: None

PATIENT
  Age: 53 Year
  Sex: Female
  Weight: 62.3 kg

DRUGS (1)
  1. TOPOTECAN [Suspect]
     Active Substance: TOPOTECAN\TOPOTECAN HYDROCHLORIDE
     Dates: end: 20151221

REACTIONS (3)
  - Vomiting [None]
  - Nausea [None]
  - Faecaloma [None]

NARRATIVE: CASE EVENT DATE: 20151227
